FAERS Safety Report 19242731 (Version 1)
Quarter: 2021Q2

REPORT INFORMATION
  Report Type: Spontaneous
  Country: CA (occurrence: CA)
  Receive Date: 20210511
  Receipt Date: 20210511
  Transmission Date: 20210717
  Serious: Yes (Other)
  Sender: FDA-Public Use
  Company Number: CA-SA-2021SA151025

PATIENT
  Sex: Male

DRUGS (14)
  1. RIFAMPICIN [Suspect]
     Active Substance: RIFAMPIN
  2. DEXILANT [Concomitant]
     Active Substance: DEXLANSOPRAZOLE
  3. HYDROMORPH CONTIN [Concomitant]
     Active Substance: HYDROMORPHONE
  4. QUETIAPINE. [Concomitant]
     Active Substance: QUETIAPINE
  5. HYDROXYCHLOROQUINE SULFATE. [Suspect]
     Active Substance: HYDROXYCHLOROQUINE SULFATE
  6. MINOCYCLINE HYDROCHLORIDE. [Suspect]
     Active Substance: MINOCYCLINE HYDROCHLORIDE
  7. PREDNISONE. [Concomitant]
     Active Substance: PREDNISONE
  8. ENBREL [Suspect]
     Active Substance: ETANERCEPT
  9. DICLOFENAC SODIUM. [Concomitant]
     Active Substance: DICLOFENAC SODIUM
  10. TRAZODONE [Concomitant]
     Active Substance: TRAZODONE HYDROCHLORIDE
  11. METHOTREXATE. [Suspect]
     Active Substance: METHOTREXATE
  12. HUMIRA [Suspect]
     Active Substance: ADALIMUMAB
     Route: 058
  13. COLCHICINE. [Concomitant]
     Active Substance: COLCHICINE
  14. CHLORMEZANONE [Concomitant]
     Active Substance: CHLORMEZANONE

REACTIONS (6)
  - Restless legs syndrome [Unknown]
  - Pneumonia [Unknown]
  - Eye disorder [Unknown]
  - Hypertension [Unknown]
  - Post procedural infection [Unknown]
  - Condition aggravated [Unknown]
